FAERS Safety Report 7562052-X (Version None)
Quarter: 2011Q2

REPORT INFORMATION
  Report Type: 
  Country: None (occurrence: None)
  Receive Date: 20110622
  Receipt Date: 20101029
  Transmission Date: 20111010
  Serious: Yes (Other)
  Sender: FDA-Public Use
  Company Number: PHHY2010DE92271

PATIENT
  Sex: Male
  Weight: 69 kg

DRUGS (7)
  1. XIPAMIDE [Concomitant]
     Dosage: 10 MG, ONCE/SINGLE
  2. NEURO-RATIOPHARM [Concomitant]
     Dosage: 1 TABLET
  3. ASPIRIN [Concomitant]
     Dosage: 100 MG, ONCE/SINGLE
  4. PANTOPRAZOLE [Concomitant]
     Dosage: 40 MG, ONCE/SINGLE
  5. ALLOPURINOL [Concomitant]
     Dosage: 100 MG, ONCE/SINGLE
  6. SANDOSTATIN LAR [Suspect]
     Indication: PANCREATIC NEUROENDOCRINE TUMOUR
     Dosage: 10 MG
     Route: 030
  7. NEOCORTIN [Concomitant]

REACTIONS (1)
  - HYPOAESTHESIA [None]
